FAERS Safety Report 8170880-5 (Version None)
Quarter: 2012Q1

REPORT INFORMATION
  Report Type: 
  Country: None (occurrence: None)
  Receive Date: 20120228
  Receipt Date: 20120220
  Transmission Date: 20120608
  Serious: Yes (Other)
  Sender: FDA-Public Use
  Company Number: GB-BRISTOL-MYERS SQUIBB COMPANY-16407066

PATIENT
  Age: 73 Year
  Sex: Male
  Weight: 108 kg

DRUGS (12)
  1. METFORMIN HCL [Concomitant]
     Dates: end: 20111112
  2. ACETAMINOPHEN AND CODEINE PHOSPHATE [Concomitant]
  3. BUMETANIDE [Concomitant]
  4. WARFARIN SODIUM [Suspect]
  5. EZETIMIBE [Concomitant]
  6. NITROGLYCERIN [Concomitant]
     Dosage: SOLUTION
  7. NICORANDIL [Concomitant]
  8. ONGLYZA [Suspect]
     Indication: TYPE 2 DIABETES MELLITUS
     Route: 048
     Dates: start: 20111112
  9. CARVEDILOL [Concomitant]
  10. DIGOXIN [Concomitant]
  11. RAMIPRIL [Concomitant]
  12. SPIRONOLACTONE [Concomitant]

REACTIONS (1)
  - INTERNATIONAL NORMALISED RATIO INCREASED [None]
